FAERS Safety Report 12975713 (Version 1)
Quarter: 2016Q4

REPORT INFORMATION
  Report Type: Spontaneous
  Country: US (occurrence: US)
  Receive Date: 20161125
  Receipt Date: 20161125
  Transmission Date: 20170207
  Serious: Yes (Other)
  Sender: FDA-Public Use
  Company Number: US-IPSEN BIOPHARMACEUTICALS, INC.-2016-10110

PATIENT
  Age: 80 Year
  Sex: Female

DRUGS (6)
  1. SOMATULINE AUTOGEL [Suspect]
     Active Substance: LANREOTIDE ACETATE
     Indication: NEUROENDOCRINE TUMOUR
     Dosage: NOT REPORTED
     Route: 065
     Dates: start: 20150908, end: 2015
  2. SUTENT [Suspect]
     Active Substance: SUNITINIB MALATE
     Indication: PANCREATIC NEUROENDOCRINE TUMOUR
     Dates: start: 20151102
  3. SUTENT [Suspect]
     Active Substance: SUNITINIB MALATE
     Dates: start: 20151129
  4. ESTROGEL [Concomitant]
     Active Substance: ESTRADIOL
     Indication: POSTMENOPAUSE
  5. NEXIUM [Concomitant]
     Active Substance: ESOMEPRAZOLE MAGNESIUM
     Indication: GASTROOESOPHAGEAL REFLUX DISEASE
  6. CARAFATE [Concomitant]
     Active Substance: SUCRALFATE
     Indication: GASTROOESOPHAGEAL REFLUX DISEASE

REACTIONS (14)
  - Hyperhomocysteinaemia [Unknown]
  - Hot flush [Unknown]
  - Increased tendency to bruise [Unknown]
  - Depression [Unknown]
  - Disease progression [Unknown]
  - Diarrhoea [Unknown]
  - Weight decreased [Unknown]
  - Flatulence [Unknown]
  - Oedema peripheral [Unknown]
  - Dehydration [Unknown]
  - Drug ineffective [Unknown]
  - Proctalgia [Unknown]
  - Fatigue [Unknown]
  - Asthenia [Unknown]

NARRATIVE: CASE EVENT DATE: 201511
